FAERS Safety Report 18899215 (Version 1)
Quarter: 2021Q1

REPORT INFORMATION
  Report Type: Spontaneous
  Country: GB (occurrence: GB)
  Receive Date: 20210216
  Receipt Date: 20210216
  Transmission Date: 20210420
  Serious: Yes (Disabling)
  Sender: FDA-Public Use
  Company Number: GB-TEVA-2021-GB-1877040

PATIENT
  Age: 56 Year
  Sex: Female

DRUGS (4)
  1. CLOPIDOGREL [Concomitant]
     Active Substance: CLOPIDOGREL BISULFATE
  2. FLUOXETINE [Concomitant]
     Active Substance: FLUOXETINE HYDROCHLORIDE
  3. ATORVASTATIN [Concomitant]
     Active Substance: ATORVASTATIN
  4. QUETIAPIN [Suspect]
     Active Substance: QUETIAPINE
     Indication: POST-TRAUMATIC STRESS DISORDER
     Dosage: 300 MG
     Route: 048
     Dates: start: 2013

REACTIONS (8)
  - Temperature intolerance [Unknown]
  - Pain [Not Recovered/Not Resolved]
  - Restless legs syndrome [Not Recovered/Not Resolved]
  - Dyspnoea [Not Recovered/Not Resolved]
  - Asthenia [Unknown]
  - Memory impairment [Unknown]
  - Restless arm syndrome [Unknown]
  - Mobility decreased [Not Recovered/Not Resolved]
